FAERS Safety Report 13091994 (Version 1)
Quarter: 2017Q1

REPORT INFORMATION
  Report Type: Spontaneous
  Country: US (occurrence: US)
  Receive Date: 20170105
  Receipt Date: 20170105
  Transmission Date: 20170428
  Serious: Yes (Hospitalization)
  Sender: FDA-Public Use
  Company Number: None

PATIENT
  Age: 60 Year
  Sex: Male
  Weight: 72.1 kg

DRUGS (1)
  1. CIPROFLOXACIN. [Suspect]
     Active Substance: CIPROFLOXACIN
     Indication: GASTROINTESTINAL BACTERIAL OVERGROWTH
     Route: 048
     Dates: start: 20160627, end: 20160727

REACTIONS (5)
  - Femoral neck fracture [None]
  - Fall [None]
  - Tendon rupture [None]
  - Peroneal nerve palsy [None]
  - Spinal decompression [None]

NARRATIVE: CASE EVENT DATE: 20160725
